FAERS Safety Report 10156674 (Version 1)
Quarter: 2014Q2

REPORT INFORMATION
  Report Type: Spontaneous
  Country: US (occurrence: None)
  Receive Date: 20140506
  Receipt Date: 20140506
  Transmission Date: 20141212
  Serious: Yes (Hospitalization)
  Sender: FDA-Public Use
  Company Number: None

PATIENT
  Age: 84 Year
  Sex: Male
  Weight: 58.74 kg

DRUGS (3)
  1. 5-FLUOROURACIL (5-FU) [Suspect]
  2. LEUCOVORIN CALCIUM [Suspect]
  3. OXALIPLATIN [Suspect]

REACTIONS (5)
  - Dysphagia [None]
  - Pain [None]
  - Fatigue [None]
  - Abdominal pain upper [None]
  - Device dislocation [None]
